FAERS Safety Report 14854664 (Version 1)
Quarter: 2018Q2

REPORT INFORMATION
  Report Type: Spontaneous
  Country: US (occurrence: US)
  Receive Date: 20180420
  Receipt Date: 20180420
  Transmission Date: 20180711
  Serious: Yes (Other)
  Sender: FDA-Public Use
  Company Number: None

PATIENT
  Age: 61 Year
  Sex: Female
  Weight: 71.67 kg

DRUGS (5)
  1. ALPRAZOLAM MFR ACTAVIS PHARMA [Suspect]
     Active Substance: ALPRAZOLAM
     Indication: SLEEP DISORDER
     Dosage: 30 DF, MOUTH, 1/4 AM, 1/4 NOON, 1/2 BEDTIME?          ?
     Route: 048
  2. CARVEDILOL. [Concomitant]
     Active Substance: CARVEDILOL
  3. 81 MG ASPIRIN [Concomitant]
     Active Substance: ASPIRIN
  4. ALPRAZOLAM MFR ACTAVIS PHARMA [Suspect]
     Active Substance: ALPRAZOLAM
     Indication: ANXIETY
     Dosage: 30 DF, MOUTH, 1/4 AM, 1/4 NOON, 1/2 BEDTIME?          ?
     Route: 048
  5. LOSARTEN [Concomitant]
     Active Substance: LOSARTAN

REACTIONS (2)
  - Anxiety [None]
  - Product substitution issue [None]

NARRATIVE: CASE EVENT DATE: 20180323
